FAERS Safety Report 19565245 (Version 1)
Quarter: 2021Q3

REPORT INFORMATION
  Report Type: Spontaneous
  Country: US (occurrence: US)
  Receive Date: 20210714
  Receipt Date: 20210714
  Transmission Date: 20211014
  Serious: Yes (Hospitalization)
  Sender: FDA-Public Use
  Company Number: US-BRISTOL-MYERS SQUIBB COMPANY-BMS-2021-066448

PATIENT
  Age: 57 Year
  Sex: Male

DRUGS (1)
  1. SPRYCEL [Suspect]
     Active Substance: DASATINIB
     Indication: ACUTE LYMPHOCYTIC LEUKAEMIA
     Dosage: 140 MILLIGRAM (DAILY)
     Route: 048
     Dates: start: 20210610

REACTIONS (5)
  - White blood cell count increased [Unknown]
  - Pyrexia [Unknown]
  - Alopecia [Unknown]
  - Nausea [Unknown]
  - Blood pressure fluctuation [Unknown]
